FAERS Safety Report 19762814 (Version 1)
Quarter: 2021Q3

REPORT INFORMATION
  Report Type: Spontaneous
  Country: US (occurrence: US)
  Receive Date: 20210830
  Receipt Date: 20210830
  Transmission Date: 20211014
  Serious: No
  Sender: FDA-Public Use
  Company Number: US-LUPIN PHARMACEUTICALS INC.-2021-15940

PATIENT
  Age: 76 Year
  Sex: Female

DRUGS (7)
  1. LEVOTHYROXINE. [Concomitant]
     Active Substance: LEVOTHYROXINE
     Indication: HYPOTHYROIDISM
     Dosage: UNK
     Route: 065
  2. WARFARIN [Suspect]
     Active Substance: WARFARIN
     Dosage: 5 MILLIGRAM (RECEIVED BLUE?COLOURED WARFARIN TABLET NOT CONTAINING EXCIPIENT FD+C YELLOW 6)
     Route: 065
  3. WARFARIN [Suspect]
     Active Substance: WARFARIN
     Indication: PULMONARY EMBOLISM
     Dosage: 5 MILLIGRAM (RECEIVED YELLOW COLOURED WARFARIN TABLET CONTAINING EXCIPIENT FD+C YELLOW 6)
     Route: 065
  4. WARFARIN [Suspect]
     Active Substance: WARFARIN
     Dosage: 4 MILLIGRAM (RECEIVED BLUE?COLOURED WARFARIN TABLET NOT CONTAINING EXCIPIENT FD+C YELLOW 6)
     Route: 065
  5. NITROFURANTOIN. [Suspect]
     Active Substance: NITROFURANTOIN
     Dosage: UNK (RECEIVED EXTENDED RELEASE NITROFURANTOIN MACROCRYSTALS CONTAINING EXCIPIENT FD+C YELLOW 6)
     Route: 065
  6. NITROFURANTOIN. [Suspect]
     Active Substance: NITROFURANTOIN
     Indication: ANTIBIOTIC PROPHYLAXIS
     Dosage: UNK (RECEIVED SHORT ACTING NITROFURANTOIN WITHOUT FD+C YELLOW 6)
     Route: 065
  7. CIPROFLOXACIN. [Suspect]
     Active Substance: CIPROFLOXACIN
     Indication: ANTIBIOTIC PROPHYLAXIS
     Dosage: UNK (RECEIVED EXTENDED RELEASE CIPROFLOXACIN CONTAINING EXCIPIENT FD+C YELLOW 6)
     Route: 065

REACTIONS (2)
  - Reaction to excipient [Recovered/Resolved]
  - Hypersensitivity [Recovered/Resolved]
